FAERS Safety Report 16253286 (Version 1)
Quarter: 2019Q2

REPORT INFORMATION
  Report Type: Spontaneous
  Country: US (occurrence: US)
  Receive Date: 20190429
  Receipt Date: 20190429
  Transmission Date: 20190711
  Serious: No
  Sender: FDA-Public Use
  Company Number: US-SA-2019SA115955

PATIENT
  Sex: Female
  Weight: 58.96 kg

DRUGS (4)
  1. ADVIL 12HOUR [Concomitant]
     Active Substance: IBUPROFEN
  2. GELNIQUE [Concomitant]
     Active Substance: OXYBUTYNIN
  3. MINASTRIN 24 FE [Concomitant]
     Active Substance: ETHINYL ESTRADIOL\NORETHINDRONE ACETATE
  4. AUBAGIO [Suspect]
     Active Substance: TERIFLUNOMIDE
     Indication: MULTIPLE SCLEROSIS
     Dosage: 14 MG, QD
     Route: 048
     Dates: start: 20190304

REACTIONS (2)
  - Alopecia [Unknown]
  - Onychomadesis [Unknown]
